FAERS Safety Report 10523931 (Version 1)
Quarter: 2014Q4

REPORT INFORMATION
  Report Type: Spontaneous
  Country: US (occurrence: None)
  Receive Date: 20141015
  Receipt Date: 20141015
  Transmission Date: 20150528
  Serious: Yes (Hospitalization)
  Sender: FDA-Public Use
  Company Number: None

PATIENT
  Age: 47 Year
  Sex: Female

DRUGS (1)
  1. OCTREOTIDE [Suspect]
     Active Substance: OCTREOTIDE
     Indication: ILL-DEFINED DISORDER
     Dosage: 100MCG, TID, SQ
     Dates: start: 20141009, end: 20141011

REACTIONS (6)
  - Dizziness [None]
  - Product quality issue [None]
  - Injection site reaction [None]
  - Nausea [None]
  - Thirst [None]
  - Product substitution issue [None]

NARRATIVE: CASE EVENT DATE: 20141010
